FAERS Safety Report 9645388 (Version 2)
Quarter: 2013Q4

REPORT INFORMATION
  Report Type: Spontaneous
  Country: JP (occurrence: JP)
  Receive Date: 20131025
  Receipt Date: 20131030
  Transmission Date: 20140711
  Serious: Yes (Life-Threatening, Disabling, Other)
  Sender: FDA-Public Use
  Company Number: JP-PFIZER INC-2013300645

PATIENT
  Age: 79 Year
  Sex: Male
  Weight: 63 kg

DRUGS (13)
  1. INLYTA [Suspect]
     Indication: METASTATIC RENAL CELL CARCINOMA
     Dosage: 6 MG, DAILY
     Route: 048
     Dates: start: 20130924, end: 20131014
  2. ROCALTROL [Concomitant]
     Dosage: 0.5 MG, 1X/DAY
     Route: 048
  3. TICLOPIDINE [Concomitant]
     Dosage: 100 MG, 1X/DAY
     Route: 048
  4. RABEPRAZOLE NA [Concomitant]
     Dosage: 10 MG, 1X/DAY
     Route: 048
  5. THYRADIN S [Concomitant]
     Dosage: 12.5 MEQ, UNK
     Route: 048
  6. SHINLUCK [Concomitant]
     Dosage: 2.5 MG, 2X/DAY
     Route: 048
  7. SENNOSIDE A [Concomitant]
     Dosage: 12 MG, 2X/DAY
     Route: 048
  8. DEPAS [Concomitant]
     Dosage: 0.5 MG, 1X/DAY
     Route: 048
  9. WARFARIN [Concomitant]
     Dosage: 3 MG, 1X/DAY
     Route: 048
  10. URSODEOXYCHOLIC ACID [Concomitant]
     Dosage: 300 MG, 1X/DAY
     Route: 048
  11. NEUROVITAN [Concomitant]
     Dosage: UNK
     Route: 048
  12. IFENPRODIL [Concomitant]
     Dosage: 20 MG, 3X/DAY
     Route: 048
  13. RHUBARB [Concomitant]
     Dosage: 1 G, 2X/DAY
     Route: 048

REACTIONS (4)
  - Cognitive disorder [Recovering/Resolving]
  - Gait disturbance [Recovering/Resolving]
  - Decreased appetite [Recovering/Resolving]
  - Platelet count decreased [Unknown]
